FAERS Safety Report 5322037-0 (Version None)
Quarter: 2007Q2

REPORT INFORMATION
  Report Type: 
  Country: None (occurrence: None)
  Receive Date: 20070508
  Receipt Date: 20070508
  Transmission Date: 20071010
  Serious: No
  Sender: FDA-Public Use
  Company Number: None

PATIENT
  Age: 68 Year
  Sex: Male
  Weight: 65.7716 kg

DRUGS (1)
  1. HYDROCHLOROTHIAZIDE [Suspect]
     Indication: MENIERE'S DISEASE
     Dosage: 1/2 TABLET  DAILY  PO
     Route: 048
     Dates: start: 20070210, end: 20070305

REACTIONS (5)
  - DRUG EFFECT DECREASED [None]
  - DYSURIA [None]
  - PHARMACEUTICAL PRODUCT COMPLAINT [None]
  - THERAPEUTIC RESPONSE UNEXPECTED WITH DRUG SUBSTITUTION [None]
  - URINE OUTPUT DECREASED [None]
